FAERS Safety Report 11327321 (Version 1)
Quarter: 2015Q3

REPORT INFORMATION
  Report Type: Spontaneous
  Country: CN (occurrence: CN)
  Receive Date: 20150731
  Receipt Date: 20150731
  Transmission Date: 20151125
  Serious: Yes (Other)
  Sender: FDA-Public Use
  Company Number: CN-UCBSA-2015024223

PATIENT
  Age: 30 Month
  Sex: Male

DRUGS (6)
  1. CHLORPHENIRAMINE. [Concomitant]
     Active Substance: CHLORPHENIRAMINE
     Indication: RASH
     Dosage: UNKNOWN DOSE
     Route: 048
  2. LORATADINE. [Concomitant]
     Active Substance: LORATADINE
     Indication: RASH
     Dosage: UNKNOWN DOSE
     Route: 048
  3. KEPPRA [Suspect]
     Active Substance: LEVETIRACETAM
     Dosage: 100 MG, 2X/DAY (BID) (16MG/KG PER DAY)
     Route: 048
  4. KEPPRA [Suspect]
     Active Substance: LEVETIRACETAM
     Dosage: 150 MG, 2X/DAY (BID) (16MG/KG PER DAY)
     Route: 048
  5. CHLORPHENIRAMINE. [Concomitant]
     Active Substance: CHLORPHENIRAMINE
     Dosage: UNKNOWN DOSE
  6. KEPPRA [Suspect]
     Active Substance: LEVETIRACETAM
     Indication: SEIZURE
     Dosage: 100 MG, 2X/DAY (BID) (16MG/KG PER DAY)
     Route: 048

REACTIONS (1)
  - Hypersensitivity [Recovered/Resolved]
